FAERS Safety Report 16060506 (Version 4)
Quarter: 2025Q2

REPORT INFORMATION
  Report Type: Spontaneous
  Country: FR (occurrence: FR)
  Receive Date: 20190312
  Receipt Date: 20250424
  Transmission Date: 20250717
  Serious: Yes (Hospitalization, Disabling, Other)
  Sender: ROCHE
  Company Number: FR-002147023-PHHY2019FR041496

PATIENT
  Age: 77 Year
  Sex: Female
  Weight: 50 kg

DRUGS (14)
  1. CELLCEPT [Suspect]
     Active Substance: MYCOPHENOLATE MOFETIL
     Indication: Bone marrow transplant
     Route: 048
     Dates: start: 201901
  2. NICARDIPINE HYDROCHLORIDE [Suspect]
     Active Substance: NICARDIPINE HYDROCHLORIDE
     Indication: Product used for unknown indication
     Route: 065
  3. LITHIUM CARBONATE [Suspect]
     Active Substance: LITHIUM CARBONATE
     Indication: Depression
     Dosage: 2 DF, QD??BRAND NAME: THERALITE
     Route: 048
     Dates: start: 2017, end: 20190215
  4. AMOXICILLIN [Suspect]
     Active Substance: AMOXICILLIN
     Indication: Infection
     Dosage: 500 MG, BID
     Route: 065
  5. VALACYCLOVIR HYDROCHLORIDE [Suspect]
     Active Substance: VALACYCLOVIR HYDROCHLORIDE
     Indication: Viral infection
     Dosage: 500 MG, BID
     Route: 048
     Dates: start: 201806
  6. ETHYL LOFLAZEPATE [Suspect]
     Active Substance: ETHYL LOFLAZEPATE
     Indication: Depression
     Dosage: 3 DF, QD (2 DF IN THE MORNING 1 DF IN THE EVENING)
     Route: 048
     Dates: start: 2017, end: 20190215
  7. NEORAL [Suspect]
     Active Substance: CYCLOSPORINE
     Indication: Bone marrow transplant
     Dosage: DOSE REDUCED
     Route: 042
  8. TERALITHE [Suspect]
     Active Substance: LITHIUM CARBONATE
     Indication: Depression
     Route: 048
     Dates: start: 2017, end: 20190215
  9. PRAVASTATIN [Suspect]
     Active Substance: PRAVASTATIN
     Indication: Hypocholesterolaemia
     Dosage: 40 MG, QD
     Route: 065
  10. URSODIOL [Concomitant]
     Active Substance: URSODIOL
  11. AMLODIPINE [Concomitant]
     Active Substance: AMLODIPINE BESYLATE
  12. KARDEGIC [Concomitant]
     Active Substance: ASPIRIN DL-LYSINE
  13. DOXEPIN HYDROCHLORIDE [Concomitant]
     Active Substance: DOXEPIN HYDROCHLORIDE
  14. BACTRIM [Concomitant]
     Active Substance: SULFAMETHOXAZOLE\TRIMETHOPRIM

REACTIONS (20)
  - Depression [Not Recovered/Not Resolved]
  - Memory impairment [Unknown]
  - Movement disorder [Recovered/Resolved]
  - Balance disorder [Not Recovered/Not Resolved]
  - Fatigue [Not Recovered/Not Resolved]
  - Feeding disorder [Unknown]
  - Incontinence [Recovered/Resolved]
  - Choking [Recovered/Resolved]
  - Confusional state [Recovered/Resolved]
  - Aphasia [Recovered/Resolved]
  - Alexithymia [Not Recovered/Not Resolved]
  - Renal failure [Not Recovered/Not Resolved]
  - Decreased appetite [Recovered/Resolved]
  - Bedridden [Not Recovered/Not Resolved]
  - Decreased appetite [Recovered/Resolved]
  - Agitation [Recovered/Resolved]
  - Condition aggravated [Recovered/Resolved]
  - Dysphagia [Recovered/Resolved]
  - Off label use [Unknown]
  - Product use in unapproved indication [Unknown]

NARRATIVE: CASE EVENT DATE: 20190101
